FAERS Safety Report 10543314 (Version 2)
Quarter: 2014Q4

REPORT INFORMATION
  Report Type: Report from Study
  Country: US (occurrence: US)
  Receive Date: 20141027
  Receipt Date: 20141027
  Transmission Date: 20150529
  Serious: Yes (Hospitalization)
  Sender: FDA-Public Use
  Company Number: US-ASTELLAS-2014US007230

PATIENT
  Age: 62 Year
  Sex: Female

DRUGS (5)
  1. ERLOTINIB [Suspect]
     Active Substance: ERLOTINIB
     Indication: METASTASES TO CENTRAL NERVOUS SYSTEM
     Route: 065
     Dates: start: 20140516, end: 20140522
  2. FOLIC ACID. [Concomitant]
     Active Substance: FOLIC ACID
     Indication: PRODUCT USED FOR UNKNOWN INDICATION
     Dosage: UNK UNK, UNKNOWN FREQ.
     Route: 065
  3. ERLOTINIB [Suspect]
     Active Substance: ERLOTINIB
     Indication: LUNG NEOPLASM MALIGNANT
     Route: 065
  4. ERLOTINIB [Suspect]
     Active Substance: ERLOTINIB
     Dosage: 75/100 MG, EVERY OTHER DAY
     Route: 065
     Dates: start: 20140702
  5. NAPROXEN                           /00256202/ [Concomitant]
     Active Substance: NAPROXEN SODIUM
     Indication: PRODUCT USED FOR UNKNOWN INDICATION
     Dosage: UNK, UNKNOWN FREQ.
     Route: 065

REACTIONS (15)
  - Pain [Recovering/Resolving]
  - Diarrhoea [Recovered/Resolved]
  - Oral mucosal erythema [Unknown]
  - Skin exfoliation [Recovering/Resolving]
  - Throat irritation [Unknown]
  - Pharyngeal oedema [Unknown]
  - Dyspnoea [Unknown]
  - Oedema peripheral [Recovered/Resolved]
  - Oral pain [Unknown]
  - Dysphagia [Unknown]
  - Chest pain [Recovered/Resolved]
  - Swollen tongue [Unknown]
  - Speech disorder [Unknown]
  - Adrenal disorder [Unknown]
  - Gastrooesophageal reflux disease [Recovered/Resolved]

NARRATIVE: CASE EVENT DATE: 20140702
